FAERS Safety Report 14753259 (Version 5)
Quarter: 2018Q2

REPORT INFORMATION
  Report Type: Spontaneous
  Country: FR (occurrence: FR)
  Receive Date: 20180412
  Receipt Date: 20180427
  Transmission Date: 20180711
  Serious: Yes (Hospitalization, Other)
  Sender: FDA-Public Use
  Company Number: FR-PFIZER INC-2018148992

PATIENT
  Age: 92 Year
  Sex: Female

DRUGS (19)
  1. AMOXICILLIN/CLAVULANIC ACID [Concomitant]
     Indication: INFLAMMATION
     Dosage: UNK
  2. DIGOXIN. [Concomitant]
     Active Substance: DIGOXIN
     Dosage: 0.125 MG, ALTERNATE DAY
     Route: 048
  3. BISOPROLOL [Interacting]
     Active Substance: BISOPROLOL
     Indication: CARDIAC FAILURE
     Dosage: 2.5 MG, DAILY
     Route: 065
     Dates: start: 2015, end: 20151001
  4. DIGOXIN. [Concomitant]
     Active Substance: DIGOXIN
     Dosage: 0.5 MG, UNK
     Route: 042
  5. CALCIUM HEPARIN [Concomitant]
     Dosage: UNK
  6. PARAFFIN [Concomitant]
     Active Substance: PARAFFIN
     Dosage: UNK
  7. PAROXETINE. [Interacting]
     Active Substance: PAROXETINE
     Indication: DEPRESSION
     Dosage: 20 MG, DAILY
     Route: 065
     Dates: start: 201504
  8. MACROGOL [Concomitant]
     Active Substance: POLYETHYLENE GLYCOLS
     Dosage: UNK
  9. DIGOXIN. [Concomitant]
     Active Substance: DIGOXIN
     Dosage: 0.25 MG, 4X/DAY
  10. AMIODARONE HCL [Interacting]
     Active Substance: AMIODARONE HYDROCHLORIDE
     Indication: BLOOD PRESSURE MEASUREMENT
  11. BISOPROLOL [Interacting]
     Active Substance: BISOPROLOL
     Dosage: 5 MG, DAILY
     Route: 065
     Dates: start: 201504
  12. ATORVASTATIN [Concomitant]
     Active Substance: ATORVASTATIN
     Dosage: UNK
  13. AMIODARONE HCL [Suspect]
     Active Substance: AMIODARONE HYDROCHLORIDE
     Indication: MYOCARDIAL ISCHAEMIA
     Dosage: 200 MG, DAILY
     Route: 065
  14. RAMIPRIL. [Concomitant]
     Active Substance: RAMIPRIL
     Dosage: UNK
  15. MORPHINE [Concomitant]
     Active Substance: MORPHINE
     Dosage: UNK
  16. FUROSEMIDE. [Concomitant]
     Active Substance: FUROSEMIDE
     Indication: HYPERTENSION
     Dosage: 40 MG, DAILY
  17. BISOPROLOL [Interacting]
     Active Substance: BISOPROLOL
     Indication: MYOCARDIAL ISCHAEMIA
     Dosage: 7.5 MG, DAILY
     Route: 065
     Dates: start: 201312, end: 201504
  18. FENTANYL. [Concomitant]
     Active Substance: FENTANYL
     Dosage: UNK
  19. FLUINDIONE [Concomitant]
     Active Substance: FLUINDIONE
     Indication: ATRIAL FIBRILLATION
     Dosage: UNK

REACTIONS (13)
  - Drug interaction [Recovered/Resolved]
  - Paroxysmal arrhythmia [Unknown]
  - Head injury [Unknown]
  - Overdose [Unknown]
  - Blood creatine phosphokinase increased [Unknown]
  - Radius fracture [Unknown]
  - Drug level increased [Unknown]
  - Rhabdomyolysis [Unknown]
  - Glomerular filtration rate decreased [Unknown]
  - Fall [Unknown]
  - Drug ineffective [Unknown]
  - Acute kidney injury [Unknown]
  - Bradycardia [Recovered/Resolved]

NARRATIVE: CASE EVENT DATE: 20131210
